FAERS Safety Report 8146820-1 (Version None)
Quarter: 2012Q1

REPORT INFORMATION
  Report Type: 
  Country: None (occurrence: None)
  Receive Date: 20120217
  Receipt Date: 20111123
  Transmission Date: 20120608
  Serious: No
  Sender: FDA-Public Use
  Company Number: US-ABBOTT-11P-163-0877892-00

PATIENT
  Sex: Female
  Weight: 72.64 kg

DRUGS (3)
  1. RIMPRIL [Concomitant]
     Indication: PRODUCT USED FOR UNKNOWN INDICATION
  2. ADVAIR DISKUS 100/50 [Concomitant]
     Indication: PRODUCT USED FOR UNKNOWN INDICATION
     Dosage: 250/50
  3. SIMCOR [Suspect]
     Indication: BLOOD CHOLESTEROL INCREASED
     Dosage: 1000/40 MG
     Dates: start: 20100101

REACTIONS (4)
  - FLUSHING [None]
  - ERYTHEMA [None]
  - FEELING HOT [None]
  - FEELING ABNORMAL [None]
